FAERS Safety Report 8401818-0 (Version None)
Quarter: 2012Q2

REPORT INFORMATION
  Report Type: 
  Country: None (occurrence: None)
  Receive Date: 20120601
  Receipt Date: 20120523
  Transmission Date: 20120825
  Serious: Yes (Hospitalization)
  Sender: FDA-Public Use
  Company Number: US-JNJFOC-20120512801

PATIENT
  Sex: Male
  Weight: 74.39 kg

DRUGS (6)
  1. LIPITOR [Concomitant]
  2. MULTAQ [Concomitant]
  3. XARELTO [Suspect]
     Indication: ATRIAL FIBRILLATION
     Route: 048
     Dates: start: 20120427, end: 20120429
  4. XARELTO [Suspect]
     Indication: CEREBROVASCULAR ACCIDENT PROPHYLAXIS
     Route: 048
     Dates: start: 20120427, end: 20120429
  5. ASPIRIN [Suspect]
     Indication: ILL-DEFINED DISORDER
     Route: 048
  6. TOPROL-XL [Concomitant]

REACTIONS (1)
  - RECTAL HAEMORRHAGE [None]
